APPROVED DRUG PRODUCT: MOZOBIL
Active Ingredient: PLERIXAFOR
Strength: 24MG/1.2ML (20MG/ML)
Dosage Form/Route: SOLUTION;SUBCUTANEOUS
Application: N022311 | Product #001 | TE Code: AP
Applicant: GENZYME CORP
Approved: Dec 15, 2008 | RLD: Yes | RS: Yes | Type: RX